FAERS Safety Report 10625888 (Version 3)
Quarter: 2015Q1

REPORT INFORMATION
  Report Type: Spontaneous
  Country: IT (occurrence: IT)
  Receive Date: 20141204
  Receipt Date: 20150223
  Transmission Date: 20150720
  Serious: Yes (Hospitalization)
  Sender: FDA-Public Use
  Company Number: IT-PFIZER INC-2014330338

PATIENT
  Age: 70 Year
  Sex: Female
  Weight: 55 kg

DRUGS (5)
  1. ENDOXAN-BAXTER [Suspect]
     Active Substance: CYCLOPHOSPHAMIDE
     Indication: BREAST CANCER
     Dosage: 600 MG/M2, CYCLIC
     Route: 042
     Dates: start: 20140901, end: 20140930
  2. CORTISONE [Concomitant]
     Active Substance: CORTISONE\HYDROCORTISONE
  3. LANSOPRAZOLE. [Concomitant]
     Active Substance: LANSOPRAZOLE
     Dosage: 30 MG, UNK
     Route: 048
  4. ADRIBLASTINA [Suspect]
     Active Substance: DOXORUBICIN HYDROCHLORIDE
     Indication: BREAST CANCER
     Dosage: 60 MG/M2, CYCLIC
     Route: 040
     Dates: start: 20140901, end: 20140930
  5. EN [Concomitant]
     Active Substance: DELORAZEPAM
     Dosage: 10 GTT, UNK
     Route: 048

REACTIONS (5)
  - Pneumonia bacterial [Recovered/Resolved]
  - Pseudomonal sepsis [Recovered/Resolved]
  - Febrile neutropenia [Recovered/Resolved]
  - Anaemia [Recovered/Resolved]
  - Leukopenia [Recovered/Resolved]

NARRATIVE: CASE EVENT DATE: 20141011
